FAERS Safety Report 5866880-8 (Version None)
Quarter: 2008Q3

REPORT INFORMATION
  Report Type: 
  Country: None (occurrence: None)
  Receive Date: 20080827
  Receipt Date: 20080813
  Transmission Date: 20090109
  Serious: Yes (Other)
  Sender: FDA-Public Use
  Company Number: 8036227

PATIENT
  Sex: Male

DRUGS (2)
  1. KEPPRA [Suspect]
     Dosage: 1500 MG 2/D PO
     Route: 048
  2. PHENYTOIN [Concomitant]

REACTIONS (1)
  - INFERTILITY MALE [None]
